FAERS Safety Report 5645248-3 (Version None)
Quarter: 2008Q1

REPORT INFORMATION
  Report Type: 
  Country: None (occurrence: None)
  Receive Date: 20080229
  Receipt Date: 20080220
  Transmission Date: 20080703
  Serious: Yes (Hospitalization)
  Sender: FDA-Public Use
  Company Number: FR-ASTRAZENECA-2008CG00284

PATIENT
  Age: 24 Year
  Sex: Female

DRUGS (15)
  1. NEXIUM [Suspect]
     Dates: end: 20080111
  2. DIPRIVAN [Suspect]
     Dates: end: 20080111
  3. PERFALGAN [Suspect]
     Dates: end: 20080112
  4. PROFENID [Suspect]
     Dates: end: 20080113
  5. ZOPHREN [Suspect]
     Dates: end: 20080113
  6. ACUPAN [Suspect]
     Dates: end: 20080111
  7. DROLEPTAN [Suspect]
     Dates: end: 20080111
  8. NITROUS OXIDE [Suspect]
     Dates: end: 20080111
  9. HYPNOVEL [Suspect]
     Dates: end: 20080111
  10. KETALAR [Suspect]
     Dates: end: 20080111
  11. SUFENTANIL CITRATE [Suspect]
     Route: 042
     Dates: end: 20080111
  12. MYOLASTAN [Suspect]
     Dates: end: 20080111
  13. MORPHINE [Suspect]
     Dates: end: 20080114
  14. LOVENOX [Suspect]
     Dates: end: 20080114
  15. RINGER [Concomitant]
     Dates: end: 20080111

REACTIONS (1)
  - ACUTE GENERALISED EXANTHEMATOUS PUSTULOSIS [None]
